FAERS Safety Report 21862842 (Version 2)
Quarter: 2023Q1

REPORT INFORMATION
  Report Type: Spontaneous
  Country: US (occurrence: US)
  Receive Date: 20230114
  Receipt Date: 20230309
  Transmission Date: 20230417
  Serious: No
  Sender: FDA-Public Use
  Company Number: US-drreddys-SPO/USA/22/0158685

PATIENT
  Age: 21 Year
  Sex: Female

DRUGS (2)
  1. ACCUTANE [Suspect]
     Active Substance: ISOTRETINOIN
     Indication: Product used for unknown indication
     Dates: start: 20220624
  2. ACCUTANE [Suspect]
     Active Substance: ISOTRETINOIN
     Dates: start: 20220624

REACTIONS (12)
  - Scar [Unknown]
  - Oral discomfort [Unknown]
  - Lip dry [Unknown]
  - Arthralgia [Unknown]
  - Pruritus [Unknown]
  - Headache [Unknown]
  - Arthralgia [Unknown]
  - Acne [Unknown]
  - Headache [Unknown]
  - Chest pain [Unknown]
  - Drug ineffective [Unknown]
  - Product quality issue [Unknown]

NARRATIVE: CASE EVENT DATE: 20220707
